FAERS Safety Report 6671850-6 (Version None)
Quarter: 2010Q2

REPORT INFORMATION
  Report Type: 
  Country: None (occurrence: None)
  Receive Date: 20100407
  Receipt Date: 20100323
  Transmission Date: 20101027
  Serious: Yes (Other)
  Sender: FDA-Public Use
  Company Number: DE-ASTRAZENECA-2010SE14668

PATIENT

DRUGS (1)
  1. PROPOFOL [Suspect]
     Indication: INDUCTION OF ANAESTHESIA
     Route: 042

REACTIONS (4)
  - LIVER DISORDER [None]
  - MEDICATION ERROR [None]
  - RENAL IMPAIRMENT [None]
  - SEPSIS [None]
